FAERS Safety Report 23585392 (Version 1)
Quarter: 2024Q1

REPORT INFORMATION
  Report Type: Spontaneous
  Country: DE (occurrence: DE)
  Receive Date: 20240301
  Receipt Date: 20240301
  Transmission Date: 20240410
  Serious: Yes (Hospitalization, Other)
  Sender: FDA-Public Use
  Company Number: None

PATIENT
  Age: 1 Day
  Sex: Male
  Weight: 3 kg

DRUGS (5)
  1. VENLAFAXINE [Suspect]
     Active Substance: VENLAFAXINE HYDROCHLORIDE
     Indication: Product used for unknown indication
     Dosage: MOTHER^S DOSE: 112.5 MG/D (BIS 75 MG/D)/ SINCE 2005, REDUCED TO 75 MG/D IN THE COURSE OF PREGNANCY
     Route: 064
  2. AMOXICILLIN [Concomitant]
     Active Substance: AMOXICILLIN
     Indication: Product used for unknown indication
     Dosage: MOTHER RECEIVED 15-MAY-2023 TO 21-MAY-2023 FOR 6 DAYS
     Route: 064
  3. BUDESONIDE [Concomitant]
     Active Substance: BUDESONIDE
     Indication: Sinusitis
     Dosage: MOTHER^S DOSE:TWICE A DAY, UNKNOWN UNTIL WHEN FROM 21-JAN-2023 TO 24-JAN-2023 FOR 3 DAYS
     Route: 064
  4. Emser Sinusitis Spray forte mit Grntee-Extrakt [Concomitant]
     Indication: Product used for unknown indication
     Dosage: MOTHER^S DOSE: S NECESSARY (AS NEEDED, FOR ONE WEEK, UNKNOWN UNTIL WHEN)
     Route: 064
  5. PROMETHAZINE [Concomitant]
     Active Substance: PROMETHAZINE HYDROCHLORIDE
     Indication: Product used for unknown indication
     Dosage: MOTHER^S DOSE: 20 [MG/D (B.BED.) ]/ 20 MG AS NEEDED, APPRO. 10X DURING PREGNANCY
     Route: 064

REACTIONS (3)
  - Foetal exposure during pregnancy [Unknown]
  - Poor feeding infant [Recovered/Resolved]
  - Respiratory disorder neonatal [Recovered/Resolved]

NARRATIVE: CASE EVENT DATE: 20230601
